FAERS Safety Report 23096707 (Version 1)
Quarter: 2023Q4

REPORT INFORMATION
  Report Type: Spontaneous
  Country: CA (occurrence: CA)
  Receive Date: 20231023
  Receipt Date: 20231023
  Transmission Date: 20240110
  Serious: Yes (Other)
  Sender: FDA-Public Use
  Company Number: CA-PFIZER INC-2018236686

PATIENT
  Age: 63 Year
  Sex: Female

DRUGS (5)
  1. IBRANCE [Suspect]
     Active Substance: PALBOCICLIB
     Indication: Breast cancer metastatic
     Dosage: 125 MG, DAILY, FOR 21 DAYS, FOLLOWED BY 7 DAYS OFF
     Route: 048
     Dates: start: 20180521
  2. IBRANCE [Suspect]
     Active Substance: PALBOCICLIB
     Dosage: 100 MG
  3. IBRANCE [Suspect]
     Active Substance: PALBOCICLIB
     Dosage: 125 MG, 1 DAY ON 2 21D/28
     Dates: start: 202212, end: 202306
  4. IBRANCE [Suspect]
     Active Substance: PALBOCICLIB
     Dosage: 125 MG, 1 DAY ON TWO FOR 3 WEEKS THEN 1 WEEK OFF
     Dates: start: 202309
  5. FULVESTRANT [Concomitant]
     Active Substance: FULVESTRANT
     Indication: Breast cancer metastatic
     Dosage: UNK
     Dates: start: 20180521

REACTIONS (10)
  - Pain [Unknown]
  - Pneumonia [Unknown]
  - Cataract [Unknown]
  - Exophthalmos [Unknown]
  - Arthralgia [Unknown]
  - Bone pain [Unknown]
  - COVID-19 [Unknown]
  - White blood cell count decreased [Unknown]
  - Bronchitis [Unknown]
  - Myalgia [Unknown]

NARRATIVE: CASE EVENT DATE: 20180101
